FAERS Safety Report 5460653-6 (Version None)
Quarter: 2007Q3

REPORT INFORMATION
  Report Type: 
  Country: None (occurrence: None)
  Receive Date: 20070918
  Receipt Date: 20070913
  Transmission Date: 20080115
  Serious: Yes (Other)
  Sender: FDA-Public Use
  Company Number: LTI2007A00255

PATIENT
  Age: 56 Year
  Sex: Male

DRUGS (2)
  1. ACTOS [Suspect]
     Indication: TYPE 2 DIABETES MELLITUS
     Dosage: 30 MG (30 MG, 1 IN 1 D)
     Route: 048
     Dates: start: 20070501
  2. ATORVASTATIN CALCIUM [Concomitant]

REACTIONS (2)
  - COUGH [None]
  - PYREXIA [None]
